FAERS Safety Report 4866184-6 (Version None)
Quarter: 2005Q4

REPORT INFORMATION
  Report Type: 
  Country: None (occurrence: None)
  Receive Date: 20051221
  Receipt Date: 20051213
  Transmission Date: 20060501
  Serious: Yes (Death)
  Sender: FDA-Public Use
  Company Number: 2005BH003609

PATIENT
  Age: 42 Year
  Sex: Male

DRUGS (2)
  1. ANTICOAGULANT SODIUM CITRATE SOLUTION [Suspect]
     Indication: PLASMAPHERESIS
     Dosage: 250 ML; ONCE
  2. SODIUM CHLORIDE 0.9% [Suspect]

REACTIONS (5)
  - ADVERSE DRUG REACTION [None]
  - DIZZINESS [None]
  - HYPERHIDROSIS [None]
  - NAUSEA [None]
  - PALLOR [None]
